FAERS Safety Report 5792344-6 (Version None)
Quarter: 2008Q2

REPORT INFORMATION
  Report Type: 
  Country: None (occurrence: None)
  Receive Date: 20080623
  Receipt Date: 20080605
  Transmission Date: 20081010
  Serious: Yes (Hospitalization)
  Sender: FDA-Public Use
  Company Number: SP01935

PATIENT
  Age: 80 Year
  Sex: Male

DRUGS (5)
  1. VISICOL [Suspect]
     Indication: COLONOSCOPY
     Dosage: ORAL
     Route: 048
     Dates: start: 20080529, end: 20080529
  2. DIMETICONE [Concomitant]
  3. SODIUM PICOSULFATE [Concomitant]
  4. MOSAPRIDE CITRATE [Concomitant]
  5. BENIDIPINE HYDROCHLORIDE [Concomitant]

REACTIONS (4)
  - ASTHENIA [None]
  - FEELING ABNORMAL [None]
  - ORAL INTAKE REDUCED [None]
  - VOMITING [None]
